FAERS Safety Report 16908920 (Version 1)
Quarter: 2019Q4

REPORT INFORMATION
  Report Type: Spontaneous
  Country: US (occurrence: US)
  Receive Date: 20190820
  Receipt Date: 20190820
  Transmission Date: 20200122
  Serious: No
  Sender: FDA-Public Use
  Company Number: None

PATIENT
  Age: 55 Year
  Sex: Female

DRUGS (1)
  1. MYCOPHENOLIC TAB 360MG DR [Suspect]
     Active Substance: MYCOPHENOLIC ACID
     Indication: TRANSPLANT
     Dates: start: 20190801

REACTIONS (10)
  - Tremor [None]
  - Blood glucose increased [None]
  - Nausea [None]
  - Hyperhidrosis [None]
  - Dizziness [None]
  - Neuropathy peripheral [None]
  - Vomiting [None]
  - Hypertension [None]
  - Visual impairment [None]
  - Headache [None]

NARRATIVE: CASE EVENT DATE: 20190820
